FAERS Safety Report 9449579 (Version 2)
Quarter: 2013Q3

REPORT INFORMATION
  Report Type: Spontaneous
  Country: BR (occurrence: BR)
  Receive Date: 20130809
  Receipt Date: 20130913
  Transmission Date: 20140515
  Serious: Yes (Hospitalization)
  Sender: FDA-Public Use
  Company Number: BR-ASTRAZENECA-2013SE60845

PATIENT
  Age: 85 Year
  Sex: Female
  Weight: 62 kg

DRUGS (16)
  1. ALENIA [Suspect]
     Indication: DYSPNOEA
     Dosage: UNKNOWN
     Route: 055
     Dates: start: 2007
  2. CRESTOR [Suspect]
     Indication: BLOOD CHOLESTEROL INCREASED
     Dosage: ROSUVASTATIN
     Route: 048
     Dates: start: 2007
  3. CRESTOR [Suspect]
     Indication: BLOOD CHOLESTEROL INCREASED
     Route: 048
     Dates: start: 2007
  4. BRILINTA [Suspect]
     Indication: CEREBRAL ISCHAEMIA
     Route: 048
  5. TEGRETOL [Concomitant]
     Indication: TRIGEMINAL NEURALGIA
     Dates: start: 2008
  6. ALDACTONE [Concomitant]
     Indication: SWELLING
     Dates: start: 201306
  7. GLIFAGE [Concomitant]
     Indication: DIABETES MELLITUS
     Dates: start: 2007
  8. RIVOTRIL [Concomitant]
     Dates: start: 2007
  9. PANTOPRAZOL [Concomitant]
     Dates: start: 2007
  10. PAROXETINE HYDROCHLORIDE [Concomitant]
     Indication: CEREBROVASCULAR ACCIDENT
     Dates: start: 201305
  11. NEBILET [Concomitant]
     Indication: CEREBROVASCULAR ACCIDENT
     Dates: start: 201305
  12. HEIMER [Concomitant]
     Indication: CEREBROVASCULAR ACCIDENT
     Dates: start: 201305
  13. CENTRUM SILVER [Concomitant]
     Indication: CEREBROVASCULAR ACCIDENT
     Dates: start: 201305
  14. CLEXANE [Concomitant]
     Indication: CEREBROVASCULAR ACCIDENT
     Dates: start: 201305
  15. VASOGARD [Concomitant]
     Indication: CEREBROVASCULAR ACCIDENT
     Dates: start: 201305
  16. LUFTAL [Concomitant]
     Indication: FLATULENCE
     Dates: start: 201306

REACTIONS (9)
  - Cerebrovascular accident [Recovered/Resolved]
  - Fall [Recovered/Resolved]
  - Femur fracture [Recovered/Resolved]
  - Cerebral ischaemia [Recovered/Resolved]
  - Trigeminal neuralgia [Not Recovered/Not Resolved]
  - Flatulence [Recovering/Resolving]
  - Swelling [Recovering/Resolving]
  - Off label use [Unknown]
  - Off label use [Not Recovered/Not Resolved]
